FAERS Safety Report 24439812 (Version 1)
Quarter: 2024Q4

REPORT INFORMATION
  Report Type: Spontaneous
  Country: RU (occurrence: RU)
  Receive Date: 20241015
  Receipt Date: 20241015
  Transmission Date: 20250115
  Serious: Yes (Other)
  Sender: PFIZER
  Company Number: RU-PFIZER INC-PV202400132197

PATIENT
  Age: 28 Year
  Sex: Male

DRUGS (3)
  1. LORLATINIB [Suspect]
     Active Substance: LORLATINIB
     Indication: Lung cancer metastatic
     Dosage: 100 MG, DAILY
     Route: 048
     Dates: start: 201904
  2. LORLATINIB [Suspect]
     Active Substance: LORLATINIB
     Dosage: 50 MG
  3. LORLATINIB [Suspect]
     Active Substance: LORLATINIB
     Dosage: 100 MG

REACTIONS (2)
  - Acute psychosis [Unknown]
  - Headache [Unknown]

NARRATIVE: CASE EVENT DATE: 20220801
